FAERS Safety Report 5725795-6 (Version None)
Quarter: 2008Q2

REPORT INFORMATION
  Report Type: 
  Country: None (occurrence: None)
  Receive Date: 20080501
  Receipt Date: 20080409
  Transmission Date: 20081010
  Serious: Yes (Hospitalization)
  Sender: FDA-Public Use
  Company Number: US-GENENTECH-260311

PATIENT
  Sex: Female
  Weight: 99.773 kg

DRUGS (6)
  1. BEVACIZUMAB [Suspect]
     Indication: NEOPLASM MALIGNANT
     Dosage: 15 MG/KG, UNK
     Dates: start: 20071022
  2. ERLOTINIB [Suspect]
     Indication: NEOPLASM MALIGNANT
     Dosage: 150 MG, QD
     Route: 048
     Dates: start: 20071022
  3. PACLITAXEL [Concomitant]
     Indication: NEOPLASM MALIGNANT
     Dosage: 50 MG/M2, 1/WEEK
     Dates: start: 20071022
  4. RADIATION [Concomitant]
     Indication: NEOPLASM MALIGNANT
     Dosage: 1.8 GY, 5/WEEK
     Dates: start: 20071022
  5. TPN [Concomitant]
     Indication: DRUG USE FOR UNKNOWN INDICATION
  6. PAIN MEDICATION (NAME UNKNOWN) [Concomitant]
     Indication: DRUG USE FOR UNKNOWN INDICATION

REACTIONS (8)
  - DIARRHOEA [None]
  - DYSPHAGIA [None]
  - FEEDING TUBE COMPLICATION [None]
  - INFECTION [None]
  - NAUSEA [None]
  - OESOPHAGITIS [None]
  - STOMATITIS [None]
  - VOMITING [None]
